FAERS Safety Report 8317518-1 (Version None)
Quarter: 2012Q2

REPORT INFORMATION
  Report Type: 
  Country: None (occurrence: None)
  Receive Date: 20120427
  Receipt Date: 20120413
  Transmission Date: 20120825
  Serious: Yes (Death, Life-Threatening, Hospitalization)
  Sender: FDA-Public Use
  Company Number: DE-BAYER-2011-013578

PATIENT
  Age: 80 Year
  Sex: Male
  Weight: 80 kg

DRUGS (15)
  1. SORAFENIB (RAF KINASE INHIBITOR) [Suspect]
     Dosage: DAILY DOSE 400 MG
     Route: 048
     Dates: start: 20110519, end: 20110718
  2. ASPIRIN [Concomitant]
     Dosage: 100 MG, QD
     Dates: start: 20110125, end: 20120405
  3. SORAFENIB (RAF KINASE INHIBITOR) [Suspect]
     Indication: HEPATIC NEOPLASM MALIGNANT
     Dosage: 800 MG, QD
     Route: 048
     Dates: start: 20101111, end: 20110302
  4. CARBIMAZOL [Concomitant]
     Dosage: 20 MG, QD
     Dates: start: 20100730, end: 20120405
  5. SPIRONOLACTONE [Concomitant]
     Dosage: 50 MG, QD
     Dates: start: 20100426, end: 20110228
  6. SORAFENIB (RAF KINASE INHIBITOR) [Suspect]
     Dosage: DAILY DOSE 600 MG
     Route: 048
     Dates: start: 20110719
  7. OLMESARTAN MEDOXOMIL [Concomitant]
     Dosage: 20 MG, QD
     Dates: start: 20100526, end: 20120405
  8. SPIRIVA [Concomitant]
     Dosage: 18 ?G, QD
     Dates: start: 20060609, end: 20120405
  9. IRENAT [Concomitant]
     Dosage: 60 GTT, QD
     Route: 048
     Dates: start: 20101018, end: 20101031
  10. ENOXAPARIN SODIUM [Concomitant]
     Dosage: 0.4 ML, QD
     Route: 058
     Dates: start: 20110303, end: 20120405
  11. CIPROFLOXACIN [Concomitant]
     Dosage: DAILY DOSE 1000 MG
     Dates: start: 20110306, end: 20120405
  12. IRENAT [Concomitant]
     Dosage: 60 GTT, QD
     Route: 048
     Dates: start: 20110301, end: 20120405
  13. AMPICILLIN AND SULBACTAM [Concomitant]
     Dosage: DAILY DOSE 4 DF
     Route: 048
     Dates: start: 20110126, end: 20110204
  14. EMBOLEX [Concomitant]
     Dosage: 0.5 ML, QD
     Route: 058
     Dates: start: 20110125, end: 20110125
  15. ALLOPURINOL [Concomitant]
     Dosage: 100 MG, QD
     Dates: start: 20001219, end: 20120405

REACTIONS (11)
  - UPPER GASTROINTESTINAL HAEMORRHAGE [None]
  - SKIN TOXICITY [None]
  - INFECTED DERMAL CYST [None]
  - DECUBITUS ULCER [None]
  - URINARY RETENTION [None]
  - HEPATIC NEOPLASM MALIGNANT [None]
  - POLYNEUROPATHY [None]
  - RENAL FAILURE [None]
  - DYSPNOEA [None]
  - CIRCULATORY COLLAPSE [None]
  - DIARRHOEA [None]
